FAERS Safety Report 5512240-9 (Version None)
Quarter: 2007Q4

REPORT INFORMATION
  Report Type: 
  Country: None (occurrence: None)
  Receive Date: 20071112
  Receipt Date: 20071031
  Transmission Date: 20080405
  Serious: Yes (Hospitalization)
  Sender: FDA-Public Use
  Company Number: NL-WYE-H00965707

PATIENT
  Sex: Female

DRUGS (4)
  1. PANTOPRAZOLE SODIUM [Suspect]
     Indication: GASTROOESOPHAGEAL REFLUX DISEASE
     Route: 048
     Dates: start: 20070101, end: 20070928
  2. IBUPROFEN [Suspect]
     Indication: PERICARDIAL DISEASE
     Dosage: 200 MG FREQUENCY UNSPECIFIED
     Route: 048
     Dates: start: 20070830, end: 20070928
  3. PARACETAMOL [Concomitant]
     Dosage: 500 MG FREQUENCY UNSPECIFIED
     Route: 048
     Dates: start: 20070828
  4. VIAGRA [Suspect]
     Indication: PULMONARY HYPERTENSION
     Route: 048
     Dates: start: 20070920, end: 20070926

REACTIONS (2)
  - PURPURA [None]
  - THROMBOCYTOPENIA [None]
